FAERS Safety Report 20769614 (Version 1)
Quarter: 2022Q2

REPORT INFORMATION
  Report Type: Spontaneous
  Country: US (occurrence: None)
  Receive Date: 20220429
  Receipt Date: 20220429
  Transmission Date: 20220721
  Serious: Yes (Other)
  Sender: FDA-Public Use
  Company Number: None

PATIENT
  Age: 35 Year
  Sex: Female
  Weight: 90 kg

DRUGS (1)
  1. ALKA SELTZER ORIGINAL 2S BLISTER PACK [Suspect]
     Active Substance: ANHYDROUS CITRIC ACID\ASPIRIN\SODIUM BICARBONATE
     Indication: Nasopharyngitis
     Dates: start: 20220423, end: 20220425

REACTIONS (1)
  - Physical examination [None]

NARRATIVE: CASE EVENT DATE: 20220426
